FAERS Safety Report 17434150 (Version 1)
Quarter: 2020Q1

REPORT INFORMATION
  Report Type: Spontaneous
  Country: NZ (occurrence: NZ)
  Receive Date: 20200219
  Receipt Date: 20200219
  Transmission Date: 20200409
  Serious: Yes (Other)
  Sender: FDA-Public Use
  Company Number: NZ-GLAXOSMITHKLINE-NZ2020028176

PATIENT
  Age: 86 Year
  Sex: Female

DRUGS (1)
  1. SCOPODERM/TRANSDERM-SCOP [Suspect]
     Active Substance: SCOPOLAMINE HYDROBROMIDE
     Indication: PRODUCT USED FOR UNKNOWN INDICATION
     Dosage: UNK(1.5MG)
     Dates: start: 201912

REACTIONS (5)
  - Fall [Unknown]
  - Hallucination [Recovering/Resolving]
  - Rib fracture [Recovering/Resolving]
  - Memory impairment [Recovering/Resolving]
  - General physical health deterioration [Recovering/Resolving]

NARRATIVE: CASE EVENT DATE: 20191213
